FAERS Safety Report 14394947 (Version 1)
Quarter: 2018Q1

REPORT INFORMATION
  Report Type: Report from Study
  Country: US (occurrence: US)
  Receive Date: 20180116
  Receipt Date: 20180116
  Transmission Date: 20180509
  Serious: Yes (Death)
  Sender: FDA-Public Use
  Company Number: US-PFIZER INC-2018019799

PATIENT

DRUGS (1)
  1. VINORELBINE TARTRATE. [Suspect]
     Active Substance: VINORELBINE TARTRATE
     Indication: MESOTHELIOMA MALIGNANT
     Dosage: 30 MG/M2, WEEKLY (QW IV)
     Route: 042

REACTIONS (1)
  - Death [Fatal]
